FAERS Safety Report 17318251 (Version 3)
Quarter: 2020Q1

REPORT INFORMATION
  Report Type: Report from Study
  Country: IL (occurrence: IL)
  Receive Date: 20200124
  Receipt Date: 20200218
  Transmission Date: 20200409
  Serious: Yes (Hospitalization)
  Sender: FDA-Public Use
  Company Number: IL-PFIZER INC-2020005791

PATIENT
  Age: 53 Year
  Sex: Male
  Weight: 61 kg

DRUGS (11)
  1. BLINDED GLASDEGIB [Suspect]
     Active Substance: GLASDEGIB
     Indication: ACUTE MYELOID LEUKAEMIA
     Dosage: UNK, 1X/DAY (ONCE DAILY CONTINUOUS)
     Route: 048
     Dates: start: 20191120, end: 20200103
  2. BLINDED PLACEBO [Suspect]
     Active Substance: INVESTIGATIONAL PRODUCT
     Indication: ACUTE MYELOID LEUKAEMIA
     Dosage: UNK, 1X/DAY (ONCE DAILY CONTINUOUS)
     Route: 048
     Dates: start: 20191120, end: 20200103
  3. CYTARABINE. [Suspect]
     Active Substance: CYTARABINE
     Indication: ACUTE MYELOID LEUKAEMIA
     Dosage: 5730 MG, CONSOLIDATION WITH SINGLE-AGENT CYTARABINE, OVER 3 HOURS TWICE DAILY ON DAYS 1,3,5
     Route: 042
     Dates: start: 20191222, end: 20191227
  4. VANCOMYCIN [Concomitant]
     Active Substance: VANCOMYCIN
     Indication: PSEUDOMEMBRANOUS COLITIS
     Dosage: 125 MG, ONCE
     Route: 048
     Dates: start: 20200105, end: 20200105
  5. VANCOMYCIN [Concomitant]
     Active Substance: VANCOMYCIN
     Indication: PSEUDOMEMBRANOUS COLITIS
     Dosage: 1 G, 4X/DAY
     Route: 042
     Dates: start: 20191226, end: 20200104
  6. FENTANYL CITRATE. [Concomitant]
     Active Substance: FENTANYL CITRATE
     Indication: ANALGESIC THERAPY
     Dosage: 200 UG, AS NEEDED
     Route: 048
  7. VANCOMYCIN [Concomitant]
     Active Substance: VANCOMYCIN
     Indication: CLOSTRIDIUM DIFFICILE INFECTION
  8. VANCOMYCIN [Concomitant]
     Active Substance: VANCOMYCIN
     Indication: CLOSTRIDIUM DIFFICILE INFECTION
  9. BLINDED PF-04449913 [Suspect]
     Active Substance: GLASDEGIB
     Indication: ACUTE MYELOID LEUKAEMIA
     Dosage: UNK, 1X/DAY (ONCE DAILY CONTINUOUS)
     Route: 048
     Dates: start: 20191120, end: 20200103
  10. DAUNORUBICIN [Suspect]
     Active Substance: DAUNORUBICIN
     Indication: ACUTE MYELOID LEUKAEMIA
     Dosage: 110 MG, DAILY (BY CONTINUOUS INFUSION)
     Route: 041
     Dates: start: 20191120, end: 20191122
  11. CYTARABINE. [Suspect]
     Active Substance: CYTARABINE
     Indication: ACUTE MYELOID LEUKAEMIA
     Dosage: 184 MG, INDUCTION, DAILY (BY CONTINUOUS INFUSION)
     Route: 041
     Dates: start: 20191120, end: 20191126

REACTIONS (2)
  - Pneumonia [Recovered/Resolved with Sequelae]
  - Neutropenic sepsis [Recovered/Resolved with Sequelae]

NARRATIVE: CASE EVENT DATE: 20200105
